FAERS Safety Report 23067747 (Version 2)
Quarter: 2023Q4

REPORT INFORMATION
  Report Type: Spontaneous
  Country: US (occurrence: None)
  Receive Date: 20231016
  Receipt Date: 20231017
  Transmission Date: 20240110
  Serious: No
  Sender: FDA-Public Use
  Company Number: US-ARIS GLOBAL-ADM202209-002990

PATIENT
  Age: 73 Year
  Sex: Male

DRUGS (15)
  1. GOCOVRI [Suspect]
     Active Substance: AMANTADINE
     Indication: Parkinson^s disease
     Route: 048
     Dates: start: 20210119
  2. GOCOVRI [Suspect]
     Active Substance: AMANTADINE
     Route: 048
  3. GOCOVRI [Suspect]
     Active Substance: AMANTADINE
     Route: 048
     Dates: start: 20210104
  4. GOCOVRI [Suspect]
     Active Substance: AMANTADINE
     Route: 048
     Dates: start: 20220824
  5. CARBIDOPA\LEVODOPA [Concomitant]
     Active Substance: CARBIDOPA\LEVODOPA
     Dosage: EACH DF CONTAINS 25-100 MG
  6. CARBIDOPA\LEVODOPA [Concomitant]
     Active Substance: CARBIDOPA\LEVODOPA
     Dosage: EACH DF CONTAINS 25/100 MG
  7. MIRAPEX [Concomitant]
     Active Substance: PRAMIPEXOLE DIHYDROCHLORIDE
     Dosage: 0.75 MG
  8. MIRAPEX [Concomitant]
     Active Substance: PRAMIPEXOLE DIHYDROCHLORIDE
     Dosage: 0.75 MG
  9. CLONAZEPAM [Concomitant]
     Active Substance: CLONAZEPAM
     Dosage: 0.5 MG
  10. OXYBUTYNIN [Concomitant]
     Active Substance: OXYBUTYNIN
     Dosage: 100 MG
  11. OXYBUTYNIN [Concomitant]
     Active Substance: OXYBUTYNIN
     Dosage: 10 MG
  12. Vitamin B/Vitamin D [Concomitant]
     Dosage: NOT PROVIDED
  13. VITAMIN B12 [Concomitant]
     Active Substance: CYANOCOBALAMIN
     Dosage: 1000 MCG TIME
  14. VITAMIN D3 [Concomitant]
     Active Substance: CHOLECALCIFEROL
     Dosage: NOT PROVIDED
  15. VITAMIN D3 [Concomitant]
     Active Substance: CHOLECALCIFEROL
     Dosage: 1000 IU

REACTIONS (5)
  - Weight decreased [Recovered/Resolved]
  - Hallucination [Recovered/Resolved]
  - Hallucination, visual [Recovered/Resolved]
  - Paranoia [Recovered/Resolved]
  - Delusion [Recovered/Resolved]

NARRATIVE: CASE EVENT DATE: 20220301
